FAERS Safety Report 17297942 (Version 6)
Quarter: 2023Q1

REPORT INFORMATION
  Report Type: Spontaneous
  Country: HR (occurrence: HR)
  Receive Date: 20200121
  Receipt Date: 20230320
  Transmission Date: 20230417
  Serious: Yes (Life-Threatening, Hospitalization, Disabling, Other)
  Sender: FDA-Public Use
  Company Number: HR-CHEPLA-C20193497

PATIENT
  Age: 40 Year
  Sex: Female

DRUGS (33)
  1. METHYLPREDNISOLONE [Suspect]
     Active Substance: METHYLPREDNISOLONE
     Indication: Diffuse large B-cell lymphoma stage IV
     Dosage: UNK, CYCLIC (FIVE CYCLES (R-CHOEP PROTOCOL) AND THREE CYCLES (R-CHEVP PROTOCOL)
  2. METHYLPREDNISOLONE [Suspect]
     Active Substance: METHYLPREDNISOLONE
     Indication: Diffuse large B-cell lymphoma stage IV
     Dosage: UNK, CYCLIC (THREE CYCLES)
  3. VINCRISTINE [Suspect]
     Active Substance: VINCRISTINE
     Indication: Diffuse large B-cell lymphoma stage IV
     Dosage: UNK, CYCLIC (FIVE CYCLES (R-CHOEP PROTOCOL)
  4. VINCRISTINE [Suspect]
     Active Substance: VINCRISTINE
     Indication: Diffuse large B-cell lymphoma stage IV
  5. DOXORUBICIN [Suspect]
     Active Substance: DOXORUBICIN
     Indication: Diffuse large B-cell lymphoma stage IV
     Dosage: UNK, CYCLIC (FIVE CYCLES (R-CHOEP PROTOCOL) AND THREE CYCLES (R-CHEVP PROTOCOL)
  6. DOXORUBICIN [Suspect]
     Active Substance: DOXORUBICIN
     Indication: Diffuse large B-cell lymphoma stage IV
     Dosage: UNK, CYCLIC (THREE CYCLES)
  7. ETOPOSIDE [Suspect]
     Active Substance: ETOPOSIDE
     Indication: Diffuse large B-cell lymphoma stage IV
     Dosage: UNK, CYCLIC (FIVE CYCLES (R-CHOEP PROTOCOL) AND THREE CYCLES (R-CHEVP PROTOCOL)
  8. ETOPOSIDE [Suspect]
     Active Substance: ETOPOSIDE
     Indication: Diffuse large B-cell lymphoma stage IV
     Dosage: UNK, CYCLIC (THREE CYCLES)
  9. CYCLOPHOSPHAMIDE [Suspect]
     Active Substance: CYCLOPHOSPHAMIDE
     Indication: Diffuse large B-cell lymphoma stage IV
     Dosage: UNK, CYCLIC (FIVE CYCLES (R-CHOEP PROTOCOL) AND THREE CYCLES (R-CHEVP PROTOCOL))
  10. CYCLOPHOSPHAMIDE [Suspect]
     Active Substance: CYCLOPHOSPHAMIDE
     Indication: Diffuse large B-cell lymphoma stage IV
     Dosage: UNK, CYCLIC (THREE CYCLES)
  11. VINBLASTINE [Suspect]
     Active Substance: VINBLASTINE
     Indication: Diffuse large B-cell lymphoma stage IV
     Dosage: UNK, CYCLIC (THREE CYCLES (R-CHEVP PROTOCOL)
  12. RITUXIMAB [Suspect]
     Active Substance: RITUXIMAB
     Indication: Diffuse large B-cell lymphoma stage IV
     Dosage: UNK, CYCLIC (FIVE CYCLES (R-CHOEP PROTOCOL) AND THREE CYCLES (R-CHEVP PROTOCOL)
  13. RITUXIMAB [Suspect]
     Active Substance: RITUXIMAB
     Indication: Diffuse large B-cell lymphoma stage IV
     Dosage: UNK, CYCLIC (THREE CYCLES)
  14. FLUCONAZOLE [Concomitant]
     Active Substance: FLUCONAZOLE
     Indication: Antibiotic prophylaxis
     Dosage: UNK
  15. AZACITIDINE [Concomitant]
     Active Substance: AZACITIDINE
     Indication: Acute myeloid leukaemia
     Dosage: UNK, CYCLIC (THREE CYCLES)
  16. AZACITIDINE [Concomitant]
     Active Substance: AZACITIDINE
     Dosage: UNK, CYCLIC (FIRST CYCLE)
  17. THIOGUANINE [Concomitant]
     Active Substance: THIOGUANINE
     Indication: Refractory anaemia with an excess of blasts
     Dosage: UNK (SHORT COURSE)
  18. ACYCLOVIR [Concomitant]
     Active Substance: ACYCLOVIR
     Indication: Antibiotic prophylaxis
     Dosage: UNK
  19. CIPROFLOXACIN [Concomitant]
     Active Substance: CIPROFLOXACIN
     Indication: Antibiotic prophylaxis
     Dosage: UNK
  20. DOLOKAIN [Concomitant]
     Indication: Mouth ulceration
     Dosage: UNK, 3X/DAY
  21. DIFLUCAN [Concomitant]
     Active Substance: FLUCONAZOLE
     Indication: Prophylaxis
     Dosage: UNK
  22. DIFLUCAN [Concomitant]
     Active Substance: FLUCONAZOLE
     Dosage: UNK
  23. GELCLAIR [Concomitant]
     Indication: Mouth ulceration
     Dosage: UNK, 3X/DAY
  24. ALDACTONE [Concomitant]
     Active Substance: SPIRONOLACTONE
     Dosage: UNK
  25. FUROSEMIDE [Concomitant]
     Active Substance: FUROSEMIDE
     Dosage: UNK
  26. BENZYDAMINE [Concomitant]
     Active Substance: BENZYDAMINE
     Dosage: UNK, 3X/DAY(UNK(SOLUTION, BENZYDAMINE HYDROCHLORIDE, 3M)
  27. METILDIGOXIN [Concomitant]
     Active Substance: METILDIGOXIN
     Dosage: UNK
  28. CONTROLOC [Concomitant]
     Active Substance: PANTOPRAZOLE SODIUM
     Dosage: UNK
  29. CURASEPT [CHLORHEXIDINE GLUCONATE] [Concomitant]
     Indication: Therapeutic gargle
     Dosage: UNK, 3X/DAY(MOUTHWASH THREE TIMES A DAY)
  30. CURASEPT [CHLORHEXIDINE GLUCONATE] [Concomitant]
     Indication: Mouth ulceration
  31. CARVEDILOL [Concomitant]
     Active Substance: CARVEDILOL
     Dosage: UNK
  32. BELODERM [BETAMETHASONE] [Concomitant]
     Indication: Mouth ulceration
     Dosage: UNK, 3X/DAY
  33. RAMIPRIL [Concomitant]
     Active Substance: RAMIPRIL
     Dosage: UNK

REACTIONS (8)
  - Toxic neuropathy [Unknown]
  - Congestive cardiomyopathy [Unknown]
  - Thrombocytopenia [Unknown]
  - Leukaemia [Unknown]
  - Pancytopenia [Unknown]
  - Acute myeloid leukaemia [Unknown]
  - Mouth ulceration [Unknown]
  - Refractory anaemia with an excess of blasts [Unknown]
